FAERS Safety Report 6132401-8 (Version None)
Quarter: 2009Q1

REPORT INFORMATION
  Report Type: 
  Country: None (occurrence: None)
  Receive Date: 20090325
  Receipt Date: 20090319
  Transmission Date: 20090719
  Serious: Yes (Other)
  Sender: FDA-Public Use
  Company Number: PHEH2009US02803

PATIENT
  Age: 85 Year
  Sex: Female

DRUGS (5)
  1. RECLAST [Suspect]
  2. VITAMINS [Concomitant]
  3. CALCIUM [Concomitant]
  4. ESTROGEN NOS [Concomitant]
  5. ANTIDEPRESSANTS [Concomitant]

REACTIONS (12)
  - ABDOMINAL PAIN UPPER [None]
  - ACTIVITIES OF DAILY LIVING IMPAIRED [None]
  - APPETITE DISORDER [None]
  - ARTHRALGIA [None]
  - ARTHRITIS [None]
  - BEDRIDDEN [None]
  - DIARRHOEA [None]
  - INFLUENZA [None]
  - LYMPHADENOPATHY [None]
  - MYALGIA [None]
  - PAIN IN EXTREMITY [None]
  - SWELLING [None]
